FAERS Safety Report 9293733 (Version 1)
Quarter: 2013Q2

REPORT INFORMATION
  Report Type: Spontaneous
  Country: BR (occurrence: BR)
  Receive Date: 20130516
  Receipt Date: 20130516
  Transmission Date: 20140414
  Serious: No
  Sender: FDA-Public Use
  Company Number: BR-009507513-1305BRA008624

PATIENT
  Sex: 0

DRUGS (2)
  1. SAPHRIS [Suspect]
     Indication: SCHIZOPHRENIA
     Dosage: 10 MG, UNKNOWN
     Route: 060
  2. SAPHRIS [Suspect]
     Dosage: 5 MG, UNKNOWN
     Route: 060

REACTIONS (1)
  - Cough [Not Recovered/Not Resolved]
